FAERS Safety Report 15812472 (Version 1)
Quarter: 2019Q1

REPORT INFORMATION
  Report Type: Spontaneous
  Country: US (occurrence: US)
  Receive Date: 20190111
  Receipt Date: 20190111
  Transmission Date: 20190417
  Serious: No
  Sender: FDA-Public Use
  Company Number: US-BAYER-2019-008144

PATIENT
  Age: 41 Year
  Sex: Female

DRUGS (2)
  1. MIRENA [Suspect]
     Active Substance: LEVONORGESTREL
     Indication: EPILEPSY
  2. MIRENA [Suspect]
     Active Substance: LEVONORGESTREL
     Indication: EPILEPSY
     Dosage: 20 MCG/24HR, CONT
     Route: 015
     Dates: start: 201804

REACTIONS (4)
  - Off label use [None]
  - Acne [None]
  - Product use in unapproved indication [None]
  - Coital bleeding [None]

NARRATIVE: CASE EVENT DATE: 201804
